FAERS Safety Report 8238934-2 (Version None)
Quarter: 2012Q1

REPORT INFORMATION
  Report Type: 
  Country: None (occurrence: None)
  Receive Date: 20120327
  Receipt Date: 20120315
  Transmission Date: 20120608
  Serious: Yes (Other)
  Sender: FDA-Public Use
  Company Number: IE-ROCHE-1049248

PATIENT
  Age: 32 Year
  Sex: Female
  Weight: 63 kg

DRUGS (4)
  1. DELTACORTRIL [Concomitant]
     Indication: RHEUMATOID ARTHRITIS
     Route: 048
  2. DICLOFENAC SODIUM [Concomitant]
     Indication: RHEUMATOID ARTHRITIS
     Route: 048
  3. ACTEMRA [Suspect]
     Indication: RHEUMATOID ARTHRITIS
     Route: 042
     Dates: start: 20120202, end: 20120301
  4. YASMIN [Concomitant]
     Indication: CONTRACEPTION
     Route: 048

REACTIONS (3)
  - BLISTER [None]
  - NIGHT SWEATS [None]
  - POLYURIA [None]
